FAERS Safety Report 19521344 (Version 1)
Quarter: 2021Q3

REPORT INFORMATION
  Report Type: Spontaneous
  Country: FR (occurrence: FR)
  Receive Date: 20210712
  Receipt Date: 20210712
  Transmission Date: 20211014
  Serious: Yes (Other)
  Sender: FDA-Public Use
  Company Number: FR-MYLANLABS-2021M1041610

PATIENT
  Age: 32 Year
  Sex: Female

DRUGS (5)
  1. QUETIAPINE. [Suspect]
     Active Substance: QUETIAPINE
     Indication: PSYCHOTIC DISORDER
     Dosage: 400 MILLIGRAM, QD
     Route: 048
     Dates: start: 20201130, end: 20201207
  2. LEPTICUR [Interacting]
     Active Substance: TROPATEPINE HYDROCHLORIDE
     Indication: PSYCHOTIC DISORDER
     Dosage: 20 MILLIGRAM, QD
     Route: 048
     Dates: start: 20201125, end: 20201204
  3. LORMETAZEPAM ARROW [Concomitant]
     Active Substance: LORMETAZEPAM
     Indication: PSYCHOTIC DISORDER
     Dosage: 2 MILLIGRAM, QD
     Route: 048
     Dates: start: 20201127
  4. DIAZEPAM. [Interacting]
     Active Substance: DIAZEPAM
     Indication: PSYCHOTIC DISORDER
     Dosage: 20 MILLIGRAM, QD
     Route: 048
     Dates: start: 20201130, end: 20201204
  5. LOXAPAC                            /00401802/ [Interacting]
     Active Substance: LOXAPINE SUCCINATE
     Indication: PSYCHOTIC DISORDER
     Dosage: 225 MILLIGRAM, QD
     Route: 048
     Dates: start: 20201127, end: 20201204

REACTIONS (2)
  - Drug interaction [Recovered/Resolved]
  - Constipation [Recovered/Resolved]

NARRATIVE: CASE EVENT DATE: 20201203
